FAERS Safety Report 6644734-7 (Version None)
Quarter: 2010Q1

REPORT INFORMATION
  Report Type: 
  Country: None (occurrence: None)
  Receive Date: 20100322
  Receipt Date: 20100312
  Transmission Date: 20100710
  Serious: Yes (Hospitalization, Other)
  Sender: FDA-Public Use
  Company Number: FI-PFIZER INC-2010031989

PATIENT
  Age: 73 Year
  Sex: Female

DRUGS (7)
  1. LIPITOR [Suspect]
     Indication: HYPERCHOLESTEROLAEMIA
     Dosage: 10 MG, 1X/DAY
  2. SIMVASTATIN [Suspect]
     Indication: HYPERCHOLESTEROLAEMIA
     Dosage: 20 MG, UNK
     Route: 048
     Dates: start: 20091103, end: 20100303
  3. BISOPROLOL ^RATIOPHARM^ [Concomitant]
     Indication: HYPERTONIA
     Dosage: 5 MG, UNK
     Route: 048
     Dates: start: 20090101
  4. COZAAR [Concomitant]
     Indication: HYPERTONIA
     Dosage: 100MG/12.5MG
     Route: 048
     Dates: start: 20090101
  5. PRIMASPAN [Concomitant]
     Indication: CARDIOVASCULAR DISORDER
     Dosage: 100 MG, UNK
     Route: 048
     Dates: start: 20090101
  6. AVANDAMET [Concomitant]
     Indication: DIABETES MELLITUS
     Dosage: 2MG/1000MG
     Route: 048
     Dates: start: 20090101
  7. BUVENTOL EASYHALER [Concomitant]
     Indication: ASTHMA
     Dosage: 200 UG, UNK
     Route: 055
     Dates: start: 20090101

REACTIONS (2)
  - TENDON RUPTURE [None]
  - TENDONITIS [None]
